FAERS Safety Report 5493807-3 (Version None)
Quarter: 2007Q4

REPORT INFORMATION
  Report Type: 
  Country: None (occurrence: None)
  Receive Date: 20071015
  Receipt Date: 20070907
  Transmission Date: 20080405
  Serious: No
  Sender: FDA-Public Use
  Company Number: 2007SP003121

PATIENT
  Age: 43 Year
  Sex: Female

DRUGS (4)
  1. LUNESTA [Suspect]
     Indication: INSOMNIA
     Dosage: 2 MG; 1X; ORAL
     Route: 048
     Dates: start: 20070829, end: 20070829
  2. CYMBALTA [Suspect]
     Indication: NEURALGIA
     Dosage: 30 MG; 1X; ORAL
     Route: 048
     Dates: start: 20070829, end: 20070829
  3. AMBIEN [Concomitant]
  4. LEVOXYL [Concomitant]

REACTIONS (2)
  - INSOMNIA [None]
  - SOMNOLENCE [None]
